FAERS Safety Report 23594936 (Version 3)
Quarter: 2024Q3

REPORT INFORMATION
  Report Type: Spontaneous
  Country: US (occurrence: US)
  Receive Date: 20240305
  Receipt Date: 20240701
  Transmission Date: 20241016
  Serious: No
  Sender: LUPIN
  Company Number: US-LUPIN PHARMACEUTICALS INC.-2024-01664

PATIENT

DRUGS (4)
  1. ALBUTEROL SULFATE [Suspect]
     Active Substance: ALBUTEROL SULFATE
     Indication: Hypersensitivity
     Dosage: UNK, PRN
     Dates: start: 202401
  2. ALBUTEROL SULFATE [Suspect]
     Active Substance: ALBUTEROL SULFATE
     Indication: Asthma
     Dosage: UNK, PRN
     Dates: start: 202401
  3. ALBUTEROL SULFATE [Suspect]
     Active Substance: ALBUTEROL SULFATE
     Indication: Dyspnoea
     Dosage: UNK, PRN
     Dates: start: 202401
  4. ALBUTEROL SULFATE [Suspect]
     Active Substance: ALBUTEROL SULFATE
     Dosage: UNK, PRN

REACTIONS (5)
  - Oropharyngeal pain [Unknown]
  - Device delivery system issue [Unknown]
  - Product packaging quantity issue [Unknown]
  - Device occlusion [Unknown]
  - Product substitution issue [Unknown]
